FAERS Safety Report 20580747 (Version 1)
Quarter: 2022Q1

REPORT INFORMATION
  Report Type: Report from Study
  Country: FR (occurrence: None)
  Receive Date: 20220311
  Receipt Date: 20220311
  Transmission Date: 20220423
  Serious: Yes (Hospitalization, Other)
  Sender: FDA-Public Use
  Company Number: FR-ROCHE-2972294

PATIENT
  Age: 71 Year
  Sex: Male
  Weight: 73 kg

DRUGS (4)
  1. BEVACIZUMAB [Suspect]
     Active Substance: BEVACIZUMAB
     Indication: Pancreatic carcinoma
     Route: 042
     Dates: start: 20210520, end: 20210903
  2. FLUOROURACIL [Concomitant]
     Active Substance: FLUOROURACIL
     Route: 042
     Dates: start: 20210520, end: 20210918
  3. IRINOTECAN [Concomitant]
     Active Substance: IRINOTECAN
     Dates: start: 20210520, end: 20210918
  4. LEVOLEUCOVORIN CALCIUM [Concomitant]
     Active Substance: LEVOLEUCOVORIN CALCIUM
     Route: 042
     Dates: start: 20210520, end: 20210918

REACTIONS (2)
  - Arterial thrombosis [Recovered/Resolved]
  - Pancreatitis acute [Recovered/Resolved]

NARRATIVE: CASE EVENT DATE: 20210909
